FAERS Safety Report 6218723-0 (Version None)
Quarter: 2009Q2

REPORT INFORMATION
  Report Type: 
  Country: None (occurrence: None)
  Receive Date: 20090608
  Receipt Date: 20090526
  Transmission Date: 20091009
  Serious: Yes (Death, Hospitalization)
  Sender: FDA-Public Use
  Company Number: US-ELI_LILLY_AND_COMPANY-US200904001815

PATIENT
  Sex: Female

DRUGS (12)
  1. HUMALOG MIX 75/25 [Suspect]
     Indication: TYPE 2 DIABETES MELLITUS
     Dosage: UNK, AS NEEDED
     Dates: start: 20081110
  2. HUMALOG MIX 75/25 [Suspect]
     Dosage: 30 U, EACH MORNING
     Dates: start: 20081110
  3. HUMALOG MIX 75/25 [Suspect]
     Dosage: 30 U, EACH EVENING
     Dates: start: 20081110
  4. HUMALOG [Suspect]
     Indication: TYPE 2 DIABETES MELLITUS
     Dosage: UNK, AS NEEDED
     Dates: start: 20081110
  5. LEVOTHYROXINE [Concomitant]
     Indication: THYROID DISORDER
     Dates: end: 20081110
  6. AZITHROMYCIN [Concomitant]
     Dates: end: 20081110
  7. SERTRALINE HCL [Concomitant]
     Indication: DEPRESSION
     Dates: end: 20081110
  8. PROPOXYPHENE-N [Concomitant]
     Dates: end: 20081110
  9. GLIPIZIDE [Concomitant]
     Dates: end: 20081110
  10. METFORMIN HYDROCHLORIDE [Concomitant]
     Dates: end: 20081110
  11. JANUVIA [Concomitant]
     Dates: end: 20081110
  12. SYNTHROID [Concomitant]

REACTIONS (10)
  - CARDIAC ARREST [None]
  - DECREASED IMMUNE RESPONSIVENESS [None]
  - HEPATIC FAILURE [None]
  - HISTOPLASMOSIS [None]
  - HISTOPLASMOSIS DISSEMINATED [None]
  - MALAISE [None]
  - RENAL FAILURE [None]
  - RESPIRATORY FAILURE [None]
  - SEPSIS [None]
  - THROMBOCYTOPENIA [None]
